FAERS Safety Report 15075095 (Version 1)
Quarter: 2018Q2

REPORT INFORMATION
  Report Type: Report from Study
  Country: US (occurrence: US)
  Receive Date: 20180627
  Receipt Date: 20180627
  Transmission Date: 20180711
  Serious: No
  Sender: FDA-Public Use
  Company Number: US-SAOL THERAPEUTICS-2017SAO01723

PATIENT
  Age: 56 Year
  Sex: Female

DRUGS (40)
  1. BACLOFEN. [Suspect]
     Active Substance: BACLOFEN
     Dosage: 551.1 ?G, \DAY
     Route: 037
     Dates: start: 20130109, end: 20130116
  2. COMPOUNDED BACLOFEN [Suspect]
     Active Substance: BACLOFEN
     Dosage: 576.1 ?G, \DAY
     Route: 037
     Dates: start: 20130226, end: 20130312
  3. COMPOUNDED BACLOFEN [Suspect]
     Active Substance: BACLOFEN
     Dosage: 631.4 ?G, \DAY
     Route: 037
     Dates: start: 20130909, end: 20131022
  4. DILAUDID [Suspect]
     Active Substance: HYDROMORPHONE HYDROCHLORIDE
     Dosage: 95.34 ?G, \DAY
     Route: 037
     Dates: start: 20130312, end: 20130410
  5. COMPOUNDED BACLOFEN [Suspect]
     Active Substance: BACLOFEN
     Dosage: 635.6 ?G, \DAY
     Route: 037
     Dates: start: 20130312, end: 20130410
  6. COMPOUNDED BACLOFEN [Suspect]
     Active Substance: BACLOFEN
     Dosage: 708.8 ?G, \DAY
     Route: 037
     Dates: end: 20130909
  7. DILAUDID [Suspect]
     Active Substance: HYDROMORPHONE HYDROCHLORIDE
     Dosage: 86.41 ?G, \DAY
     Route: 037
     Dates: start: 20130226, end: 20130312
  8. DILAUDID [Suspect]
     Active Substance: HYDROMORPHONE HYDROCHLORIDE
     Dosage: 109.58 ?G, \DAY
     Route: 037
     Dates: start: 20130410
  9. CLONIDINE. [Suspect]
     Active Substance: CLONIDINE
     Dosage: 26.264 ?G, \DAY
     Route: 037
     Dates: start: 20130116
  10. COMPOUNDED BACLOFEN [Suspect]
     Active Substance: BACLOFEN
     Dosage: 701.0 ?G, \DAY
     Route: 037
     Dates: start: 20131028
  11. COMPOUNDED BACLOFEN [Suspect]
     Active Substance: BACLOFEN
     Dosage: 897.1 ?G, \DAY MAX
     Route: 037
     Dates: start: 20131028
  12. DILAUDID [Suspect]
     Active Substance: HYDROMORPHONE HYDROCHLORIDE
     Dosage: 52.53 ?G, \DAY
     Route: 037
     Dates: start: 20130116
  13. DILAUDID [Suspect]
     Active Substance: HYDROMORPHONE HYDROCHLORIDE
     Dosage: 94.71 ?G, \DAY
     Route: 037
     Dates: start: 20130909, end: 20131022
  14. DILAUDID [Suspect]
     Active Substance: HYDROMORPHONE HYDROCHLORIDE
     Dosage: 105.150 ?G, \DAY
     Route: 037
     Dates: start: 20131028
  15. CLONIDINE. [Suspect]
     Active Substance: CLONIDINE
     Dosage: 37.53 ?G, \DAY
     Route: 037
     Dates: start: 20131022, end: 20131028
  16. CLONIDINE. [Suspect]
     Active Substance: CLONIDINE
     Dosage: 47.33 ?G, \DAY MAX
     Route: 037
     Dates: start: 20131022, end: 20131028
  17. COMPOUNDED BACLOFEN [Suspect]
     Active Substance: BACLOFEN
     Dosage: 946.5 ?G, \DAY MAX
     Route: 037
     Dates: start: 20131022, end: 20131028
  18. DILAUDID [Suspect]
     Active Substance: HYDROMORPHONE HYDROCHLORIDE
     Dosage: 78.79 ?G, \DAY
     Route: 037
     Dates: end: 20130226
  19. CLONIDINE. [Suspect]
     Active Substance: CLONIDINE
     Dosage: 28.80 ?G, \DAY
     Route: 037
     Dates: start: 20130226, end: 20130312
  20. CLONIDINE. [Suspect]
     Active Substance: CLONIDINE
     Dosage: 31.57 ?G, \DAY
     Route: 037
     Dates: start: 20130909, end: 20131022
  21. DILAUDID [Suspect]
     Active Substance: HYDROMORPHONE HYDROCHLORIDE
     Dosage: 106.32 ?G, \DAY
     Route: 037
     Dates: end: 20130909
  22. CLONIDINE. [Suspect]
     Active Substance: CLONIDINE
     Dosage: 27.554 ?G, \DAY
     Route: 037
     Dates: start: 20130109, end: 20130116
  23. CLONIDINE. [Suspect]
     Active Substance: CLONIDINE
     Dosage: 35.05 ?G, \DAY
     Route: 037
     Dates: start: 20131028
  24. COMPOUNDED BACLOFEN [Suspect]
     Active Substance: BACLOFEN
     Dosage: 730.6 ?G, \DAY
     Route: 037
     Dates: start: 20130410, end: 20140423
  25. DILAUDID [Suspect]
     Active Substance: HYDROMORPHONE HYDROCHLORIDE
     Dosage: 50.05 ?G, \DAY
     Route: 037
     Dates: end: 20130109
  26. DILAUDID [Suspect]
     Active Substance: HYDROMORPHONE HYDROCHLORIDE
     Dosage: 141.98 ?G, \DAY MAX
     Route: 037
     Dates: start: 20131022, end: 20131028
  27. DILAUDID [Suspect]
     Active Substance: HYDROMORPHONE HYDROCHLORIDE
     Dosage: 134.57 ?G, \DAY MAX
     Route: 037
     Dates: start: 20131028
  28. CLONIDINE. [Suspect]
     Active Substance: CLONIDINE
     Dosage: 25.023 ?G, \DAY
     Route: 037
     Dates: end: 20130109
  29. BOTOX [Suspect]
     Active Substance: ONABOTULINUMTOXINA
  30. COMPOUNDED BACLOFEN [Suspect]
     Active Substance: BACLOFEN
     Dosage: 525.3 ?G, \DAY
     Route: 037
     Dates: end: 20130226
  31. DILAUDID [Suspect]
     Active Substance: HYDROMORPHONE HYDROCHLORIDE
     Dosage: 55.11 ?G, \DAY
     Route: 037
     Dates: start: 20130109, end: 20130116
  32. CLONIDINE. [Suspect]
     Active Substance: CLONIDINE
     Dosage: 26.26 ?G, \DAY
     Route: 037
     Dates: end: 20130226
  33. CLONIDINE. [Suspect]
     Active Substance: CLONIDINE
     Dosage: 31.78 ?G, \DAY
     Route: 037
     Dates: start: 20130312, end: 20130410
  34. CLONIDINE. [Suspect]
     Active Substance: CLONIDINE
     Dosage: 36.53 ?G, \DAY
     Route: 037
     Dates: start: 20130410
  35. CLONIDINE. [Suspect]
     Active Substance: CLONIDINE
     Dosage: 44.86 ?G, \DAY MAX
     Route: 037
     Dates: start: 20131028
  36. BACLOFEN. [Suspect]
     Active Substance: BACLOFEN
     Dosage: 500.5, ?G\DAY
     Route: 037
     Dates: end: 20130109
  37. BACLOFEN. [Suspect]
     Active Substance: BACLOFEN
     Dosage: 525.3 ?G, \DAY
     Route: 037
     Dates: start: 20130116
  38. COMPOUNDED BACLOFEN [Suspect]
     Active Substance: BACLOFEN
     Dosage: 750.7 ?G, \DAY
     Route: 037
     Dates: start: 20131022, end: 20131028
  39. DILAUDID [Suspect]
     Active Substance: HYDROMORPHONE HYDROCHLORIDE
     Dosage: 112.60 ?G, \DAY
     Route: 037
     Dates: start: 20131022, end: 20131028
  40. CLONIDINE. [Suspect]
     Active Substance: CLONIDINE
     Dosage: 35.44 ?G, \DAY
     Route: 037
     Dates: end: 20130909

REACTIONS (10)
  - Implant site swelling [Recovered/Resolved]
  - Muscular weakness [Recovered/Resolved]
  - Somnolence [Recovered/Resolved]
  - Overdose [Recovered/Resolved]
  - Back pain [Recovered/Resolved]
  - Implant site pain [Recovered/Resolved]
  - Asthenia [Recovered/Resolved]
  - Feeling abnormal [Recovered/Resolved]
  - Sedation [Recovered/Resolved]
  - Implant site extravasation [Recovered/Resolved]

NARRATIVE: CASE EVENT DATE: 20130109
